FAERS Safety Report 19145562 (Version 1)
Quarter: 2021Q2

REPORT INFORMATION
  Report Type: Spontaneous
  Country: US (occurrence: US)
  Receive Date: 20210416
  Receipt Date: 20210416
  Transmission Date: 20210717
  Serious: Yes (Hospitalization, Other)
  Sender: FDA-Public Use
  Company Number: None

PATIENT
  Age: 82 Year
  Sex: Female

DRUGS (1)
  1. IBRUTINIB [Suspect]
     Active Substance: IBRUTINIB
     Indication: CHRONIC LYMPHOCYTIC LEUKAEMIA
     Route: 048
     Dates: start: 20210401, end: 20210413

REACTIONS (7)
  - Left ventricular hypertrophy [None]
  - Chest pain [None]
  - Ejection fraction decreased [None]
  - Left ventricular dysfunction [None]
  - Respiratory distress [None]
  - Ventricular hypokinesia [None]
  - Ventricular dyskinesia [None]

NARRATIVE: CASE EVENT DATE: 20210413
